FAERS Safety Report 8547807-7 (Version None)
Quarter: 2012Q3

REPORT INFORMATION
  Report Type: 
  Country: None (occurrence: None)
  Receive Date: 20120727
  Receipt Date: 20120201
  Transmission Date: 20120928
  Serious: Yes (Hospitalization)
  Sender: FDA-Public Use
  Company Number: US-ASTRAZENECA-2012SE06836

PATIENT
  Age: 42 Year
  Sex: Female
  Weight: 74.8 kg

DRUGS (14)
  1. SEROQUEL [Suspect]
     Dosage: 100 MG AT NIGHT 25 MG TWICE A DAY
     Route: 048
     Dates: start: 20120101
  2. SEROQUEL [Suspect]
     Route: 048
  3. TYROSINE [Concomitant]
     Dosage: 25 MG EVERY SIX HOURS AND 50 MG AT NIGHT
  4. SEROQUEL [Suspect]
     Dosage: 100 MG AT NIGHT 25 MG TWICE A DAY
     Route: 048
     Dates: start: 20120101
  5. GENERIC FOR PRILOSEC [Concomitant]
  6. SEROQUEL [Suspect]
     Route: 048
     Dates: start: 20110801
  7. GENERIC FOR ZOCOR [Concomitant]
     Indication: BLOOD CHOLESTEROL ABNORMAL
  8. SEROQUEL [Suspect]
     Indication: DEPRESSION
     Dosage: 100 MG IN THE MORNING AND 200 MG AT NIGHT
     Route: 048
  9. SEROQUEL [Suspect]
     Route: 048
     Dates: start: 20110801
  10. SEROQUEL [Suspect]
     Route: 048
  11. BUSPAR [Concomitant]
     Dosage: 50 MG IN THE MORNING AND 50 MG AT NIGHT
  12. PAXIL [Concomitant]
  13. LORTAB [Concomitant]
     Dosage: 10/500
  14. SEROQUEL [Suspect]
     Indication: BIPOLAR DISORDER
     Dosage: 100 MG IN THE MORNING AND 200 MG AT NIGHT
     Route: 048

REACTIONS (3)
  - BIPOLAR DISORDER [None]
  - DRUG INEFFECTIVE [None]
  - DEPRESSION [None]
